FAERS Safety Report 8595953-4 (Version None)
Quarter: 2012Q3

REPORT INFORMATION
  Report Type: 
  Country: None (occurrence: None)
  Receive Date: 20120815
  Receipt Date: 20120806
  Transmission Date: 20120928
  Serious: Yes (Hospitalization)
  Sender: FDA-Public Use
  Company Number: US-ASTRAZENECA-2012SE55533

PATIENT
  Age: 36 Year
  Sex: Female

DRUGS (7)
  1. EXCEDRIN TENSION HEADACHES [Suspect]
     Indication: MIGRAINE
     Route: 048
     Dates: start: 20110101, end: 20120601
  2. EXCEDRIN (MIGRAINE) [Suspect]
     Indication: MIGRAINE
     Route: 048
  3. LORTAB [Suspect]
     Route: 065
  4. LISINOPRIL [Suspect]
     Route: 048
  5. CRESTOR [Suspect]
     Route: 048
  6. FENOFIBRATE [Suspect]
     Route: 065
  7. EXCEDRIN (MIGRAINE) [Suspect]
     Indication: MIGRAINE
     Route: 048

REACTIONS (3)
  - SCAR [None]
  - DRUG SCREEN POSITIVE [None]
  - CERVIX DISORDER [None]
